FAERS Safety Report 9222005 (Version 1)
Quarter: 2013Q2

REPORT INFORMATION
  Report Type: Spontaneous
  Country: US (occurrence: US)
  Receive Date: 20130410
  Receipt Date: 20130410
  Transmission Date: 20140414
  Serious: No
  Sender: FDA-Public Use
  Company Number: US-PFIZER INC-2013113098

PATIENT
  Age: 48 Year
  Sex: Female
  Weight: 86.17 kg

DRUGS (4)
  1. PRISTIQ [Suspect]
     Indication: DEPRESSION
     Dosage: 50 MG DAILY
  2. PRISTIQ [Suspect]
     Dosage: 100 MG DAILY
     Dates: start: 2012, end: 201303
  3. NEXIUM [Concomitant]
     Indication: GASTROOESOPHAGEAL REFLUX DISEASE
     Dosage: 40 MG DAILY AT NIGHT
  4. SYNTHROID [Concomitant]
     Indication: THYROID DISORDER
     Dosage: 0.112 MG DAILY

REACTIONS (3)
  - Anger [Not Recovered/Not Resolved]
  - Emotional disorder [Not Recovered/Not Resolved]
  - Wrong technique in drug usage process [Unknown]
